FAERS Safety Report 4679805-8 (Version None)
Quarter: 2005Q2

REPORT INFORMATION
  Report Type: 
  Country: None (occurrence: None)
  Receive Date: 20050602
  Receipt Date: 20041130
  Transmission Date: 20051028
  Serious: Yes (Life-Threatening, Disabling)
  Sender: FDA-Public Use
  Company Number: US-MERCK-0412USA00013

PATIENT
  Age: 75 Year
  Sex: Female

DRUGS (3)
  1. VIOXX [Suspect]
     Indication: ARTHRITIS
     Route: 048
     Dates: start: 20040301, end: 20040101
  2. VERAPAMIL [Concomitant]
     Route: 065
  3. VALIUM [Concomitant]
     Route: 065

REACTIONS (2)
  - NAUSEA [None]
  - PALPITATIONS [None]
